FAERS Safety Report 11741499 (Version 1)
Quarter: 2015Q4

REPORT INFORMATION
  Report Type: Spontaneous
  Country: GB (occurrence: GB)
  Receive Date: 20151116
  Receipt Date: 20151116
  Transmission Date: 20160304
  Serious: Yes (Other)
  Sender: FDA-Public Use
  Company Number: PHFR2015GB008724

PATIENT
  Sex: Female

DRUGS (4)
  1. PREDNISOLONE. [Concomitant]
     Active Substance: PREDNISOLONE
     Indication: PRODUCT USED FOR UNKNOWN INDICATION
     Route: 065
  2. NEORAL [Suspect]
     Active Substance: CYCLOSPORINE
     Indication: PRODUCT USED FOR UNKNOWN INDICATION
     Dosage: 100 MG
     Route: 065
  3. NEORAL [Suspect]
     Active Substance: CYCLOSPORINE
     Dosage: 25 MG
     Route: 065
  4. NEORAL [Suspect]
     Active Substance: CYCLOSPORINE
     Dosage: 50 MG
     Route: 065

REACTIONS (1)
  - Upper limb fracture [Unknown]
